FAERS Safety Report 23275226 (Version 1)
Quarter: 2023Q4

REPORT INFORMATION
  Report Type: Spontaneous
  Country: IN (occurrence: IN)
  Receive Date: 20231208
  Receipt Date: 20231208
  Transmission Date: 20240110
  Serious: Yes (Hospitalization, Other)
  Sender: FDA-Public Use
  Company Number: IN-CIPLA LTD.-2023IN07651

PATIENT

DRUGS (1)
  1. DEFERASIROX [Suspect]
     Active Substance: DEFERASIROX
     Indication: Thalassaemia
     Dosage: 500 MILLIGRAM, QD (500 MG ONCE A DAY AT 41.6 MG/KG/DAY)
     Route: 065

REACTIONS (6)
  - Toxicity to various agents [Unknown]
  - Shock haemorrhagic [Recovering/Resolving]
  - Upper gastrointestinal haemorrhage [Recovering/Resolving]
  - Acute hepatic failure [Recovering/Resolving]
  - Renal impairment [Unknown]
  - Duodenal ulcer [Recovering/Resolving]
